FAERS Safety Report 17869547 (Version 1)
Quarter: 2020Q2

REPORT INFORMATION
  Report Type: Spontaneous
  Country: HU (occurrence: HU)
  Receive Date: 20200608
  Receipt Date: 20200608
  Transmission Date: 20200714
  Serious: Yes (Hospitalization)
  Sender: FDA-Public Use
  Company Number: HU-SA-2020SA143631

PATIENT

DRUGS (2)
  1. CLEXANE [Suspect]
     Active Substance: ENOXAPARIN SODIUM
     Indication: SUICIDE ATTEMPT
     Dosage: 8000 IU
     Route: 065
  2. INSUMAN RAPID [Suspect]
     Active Substance: INSULIN HUMAN
     Indication: SUICIDE ATTEMPT
     Dosage: 100 U
     Route: 065

REACTIONS (2)
  - Hypoglycaemia [Unknown]
  - Intentional overdose [Unknown]
